FAERS Safety Report 5343906-1 (Version None)
Quarter: 2007Q2

REPORT INFORMATION
  Report Type: 
  Country: None (occurrence: None)
  Receive Date: 20070531
  Receipt Date: 20070531
  Transmission Date: 20071010
  Serious: Yes (Hospitalization)
  Sender: FDA-Public Use
  Company Number: None

PATIENT
  Age: 30 Year
  Sex: Male
  Weight: 136.0791 kg

DRUGS (1)
  1. SMZ/TMP DS 800-160 LANNETT [Suspect]
     Indication: STAPHYLOCOCCAL INFECTION
     Dosage: 1 TAB TWICE DAILY PO
     Route: 048

REACTIONS (2)
  - CHEST PAIN [None]
  - PYREXIA [None]
